FAERS Safety Report 6834277-X (Version None)
Quarter: 2010Q3

REPORT INFORMATION
  Report Type: 
  Country: None (occurrence: None)
  Receive Date: 20100712
  Receipt Date: 20070425
  Transmission Date: 20110219
  Serious: Yes (Other)
  Sender: FDA-Public Use
  Company Number: US-PFIZER INC-2007034810

PATIENT
  Sex: Male
  Weight: 72.727 kg

DRUGS (7)
  1. CHANTIX [Suspect]
     Indication: SMOKING CESSATION THERAPY
     Dosage: DAILY
     Dates: start: 20070401
  2. SUSTIVA [Concomitant]
  3. KALETRA [Concomitant]
  4. COMBIVIR [Concomitant]
  5. PERCOCET [Concomitant]
     Dates: start: 20070401
  6. VALIUM [Concomitant]
     Dates: start: 20070401
  7. DULCOLAX [Concomitant]
     Dates: start: 20070401

REACTIONS (2)
  - DEEP VEIN THROMBOSIS [None]
  - NAUSEA [None]
